FAERS Safety Report 18153567 (Version 3)
Quarter: 2020Q4

REPORT INFORMATION
  Report Type: Spontaneous
  Country: JP (occurrence: JP)
  Receive Date: 20200816
  Receipt Date: 20201218
  Transmission Date: 20210113
  Serious: Yes (Hospitalization, Other)
  Sender: FDA-Public Use
  Company Number: JP-TEVA-2020-JP-1815518

PATIENT
  Age: 63 Year
  Sex: Female
  Weight: 45 kg

DRUGS (9)
  1. AZILECT [Suspect]
     Active Substance: RASAGILINE MESYLATE
     Indication: PARKINSON^S DISEASE
     Dosage: .5 MILLIGRAM DAILY;
     Route: 048
     Dates: start: 20191125, end: 20191222
  2. AZILECT [Suspect]
     Active Substance: RASAGILINE MESYLATE
     Dosage: 1 MILLIGRAM DAILY;
     Route: 048
     Dates: start: 20191223
  3. NEUPRO [Concomitant]
     Active Substance: ROTIGOTINE
  4. CALONAL [Concomitant]
     Active Substance: ACETAMINOPHEN
  5. SHAKUYAKUKANZOTO [Concomitant]
     Active Substance: HERBALS
  6. TERNELIN [Concomitant]
     Active Substance: TIZANIDINE
  7. NOURIAST [Concomitant]
     Active Substance: ISTRADEFYLLINE
  8. STALEVO [Concomitant]
     Active Substance: CARBIDOPA\ENTACAPONE\LEVODOPA
  9. ATENOLOL. [Concomitant]
     Active Substance: ATENOLOL

REACTIONS (2)
  - Femur fracture [Recovering/Resolving]
  - Fall [Recovering/Resolving]

NARRATIVE: CASE EVENT DATE: 20200629
